FAERS Safety Report 8503019 (Version 2)
Quarter: 2013Q1

REPORT INFORMATION
  Report Type: Spontaneous
  Country: GB (occurrence: GB)
  Receive Date: 20120411
  Receipt Date: 20130116
  Transmission Date: 20140127
  Serious: Yes (Hospitalization, Other)
  Sender: FDA-Public Use
  Company Number: GB-ELI_LILLY_AND_COMPANY-GB201204000064

PATIENT
  Age: 73 Year
  Sex: Male

DRUGS (6)
  1. OLANZAPINE [Suspect]
     Indication: BIPOLAR DISORDER
     Dosage: 5 MG, QD
     Route: 048
     Dates: start: 20110830, end: 20120315
  2. DOMPERIDONE [Concomitant]
  3. ESOMEPRAZOLE [Concomitant]
  4. FINASTERIDE [Concomitant]
  5. LOFEPRAMINE [Concomitant]
  6. PRIADEL [Concomitant]
     Indication: BIPOLAR DISORDER

REACTIONS (7)
  - Neuroleptic malignant syndrome [Recovering/Resolving]
  - Urine output decreased [Recovering/Resolving]
  - Decreased appetite [Recovering/Resolving]
  - Diarrhoea [Recovering/Resolving]
  - Pain in extremity [Recovering/Resolving]
  - Blood creatine phosphokinase increased [Recovering/Resolving]
  - Blood creatinine increased [Recovering/Resolving]
